FAERS Safety Report 6694797-8 (Version None)
Quarter: 2010Q2

REPORT INFORMATION
  Report Type: 
  Country: None (occurrence: None)
  Receive Date: 20100423
  Receipt Date: 20100412
  Transmission Date: 20101027
  Serious: No
  Sender: FDA-Public Use
  Company Number: US-JNJFOC-20100403444

PATIENT
  Sex: Female
  Weight: 72.12 kg

DRUGS (5)
  1. FENTANYL CITRATE [Suspect]
     Indication: ARTHRALGIA
     Route: 062
  2. FENTANYL CITRATE [Suspect]
     Route: 062
  3. LEVOTHYROXINE [Concomitant]
     Indication: HYPOTHYROIDISM
     Route: 048
  4. VICODIN [Concomitant]
     Indication: BREAKTHROUGH PAIN
     Route: 048
  5. ZOCOR [Concomitant]
     Indication: BLOOD CHOLESTEROL INCREASED
     Route: 048

REACTIONS (3)
  - ARTHRALGIA [None]
  - INAPPROPRIATE SCHEDULE OF DRUG ADMINISTRATION [None]
  - WITHDRAWAL SYNDROME [None]
